FAERS Safety Report 23792490 (Version 6)
Quarter: 2024Q3

REPORT INFORMATION
  Report Type: Spontaneous
  Country: US (occurrence: US)
  Receive Date: 20240429
  Receipt Date: 20240909
  Transmission Date: 20241017
  Serious: No
  Sender: PFIZER
  Company Number: US-PFIZER INC-202400089296

PATIENT
  Age: 11 Year
  Sex: Male
  Weight: 22.23 kg

DRUGS (3)
  1. GENOTROPIN [Suspect]
     Active Substance: SOMATROPIN
     Indication: Short stature
     Dosage: THEN FOLLOWING DAY 1.2 MG, ROTATES BACK AND FORTH, EVERY NIGHT FOR 6 DAYS A WEEK, SUNDAY REST
     Dates: start: 20240401
  2. GENOTROPIN [Suspect]
     Active Substance: SOMATROPIN
     Dosage: ALTERNATE 1 MG + 1.2 MG, EVERY OTHER DAY, 6 DAYS PER WEEK
  3. GENOTROPIN [Suspect]
     Active Substance: SOMATROPIN
     Dosage: ALTERNATE 1 MG + 1.2 MG, EVERY OTHER DAY, 6 DAYS PER WEEK

REACTIONS (4)
  - Device delivery system issue [Unknown]
  - Device information output issue [Unknown]
  - Wrong technique in device usage process [Unknown]
  - Drug dose omission by device [Unknown]

NARRATIVE: CASE EVENT DATE: 20240413
